FAERS Safety Report 9813309 (Version 2)
Quarter: 2014Q1

REPORT INFORMATION
  Report Type: Spontaneous
  Country: US (occurrence: US)
  Receive Date: 20140113
  Receipt Date: 20140124
  Transmission Date: 20141002
  Serious: No
  Sender: FDA-Public Use
  Company Number: US-BAXTER-2014BAX000151

PATIENT
  Sex: Male

DRUGS (2)
  1. DIANEAL LOW CALCIUM [Suspect]
     Indication: PERITONEAL DIALYSIS
     Route: 033
     Dates: start: 201211
  2. INSULIN [Concomitant]
     Indication: DIABETES MELLITUS

REACTIONS (2)
  - Ultrafiltration failure [Recovered/Resolved]
  - Abdominal distension [Recovered/Resolved]
